FAERS Safety Report 9926987 (Version 1)
Quarter: 2014Q1

REPORT INFORMATION
  Report Type: Spontaneous
  Country: US (occurrence: US)
  Receive Date: 20140226
  Receipt Date: 20140226
  Transmission Date: 20141002
  Serious: No
  Sender: FDA-Public Use
  Company Number: US-AMGEN-USASP2013090649

PATIENT
  Age: 59 Year
  Sex: Female
  Weight: 112.2 kg

DRUGS (19)
  1. ENBREL [Suspect]
     Indication: PRODUCT USED FOR UNKNOWN INDICATION
     Dosage: 50 MG, QWK
     Route: 058
  2. NAPROXEN [Concomitant]
     Dosage: 250 MG, UNK
  3. LEFLUNOMIDE [Concomitant]
     Dosage: 10 MG, UNK
  4. ASPIRIN BUFFERED [Concomitant]
     Dosage: 324 MG, UNK
  5. TRAMADOL HCL [Concomitant]
     Dosage: 50 MG, UNK
  6. PLAVIX [Concomitant]
     Dosage: 75 MG, UNK
  7. METOPROLOL [Concomitant]
     Dosage: 100 MG, UNK
  8. POTASSIUM [Concomitant]
     Dosage: 75 MG, UNK
  9. AMLODIPINE [Concomitant]
     Dosage: 2.5 MG, UNK
  10. DEXILANT [Concomitant]
     Dosage: 30 MG, UNK
  11. FLAXSEED OIL [Concomitant]
     Dosage: UNK
  12. VITAMIN D3 [Concomitant]
     Dosage: 10000 UNIT, UNK
  13. LOSARTAN POTASSIUM [Concomitant]
     Dosage: 100 MG, UNK
  14. ALBUTEROL                          /00139501/ [Concomitant]
     Dosage: 90 MUG, UNK
  15. ATORVASTATIN [Concomitant]
     Dosage: 20 MG, UNK
  16. LORAZEPAM [Concomitant]
     Dosage: 0.5 MG, UNK
  17. BRIMONIDINE [Concomitant]
     Dosage: 0.2 %, UNK OP
  18. CLONIDINE [Concomitant]
     Dosage: 0.1 MG, UNK
  19. PLAQUENIL                          /00072602/ [Concomitant]
     Dosage: 200 MG, UNK

REACTIONS (5)
  - Malaise [Unknown]
  - Cough [Unknown]
  - Fatigue [Unknown]
  - Chills [Unknown]
  - Nasopharyngitis [Unknown]
